FAERS Safety Report 7975756-1 (Version None)
Quarter: 2011Q4

REPORT INFORMATION
  Report Type: 
  Country: None (occurrence: None)
  Receive Date: 20111213
  Receipt Date: 20111005
  Transmission Date: 20120403
  Serious: No
  Sender: FDA-Public Use
  Company Number: US-AMGEN-USASP2011051534

PATIENT
  Age: 54 Year
  Sex: Male
  Weight: 86.2 kg

DRUGS (1)
  1. ENBREL [Suspect]
     Indication: ARTHRITIS
     Dosage: 50 MG, QWK
     Dates: start: 20110101, end: 20111005

REACTIONS (1)
  - LIVER FUNCTION TEST ABNORMAL [None]
